FAERS Safety Report 6053881-2 (Version None)
Quarter: 2009Q1

REPORT INFORMATION
  Report Type: 
  Country: None (occurrence: None)
  Receive Date: 20090123
  Receipt Date: 20090115
  Transmission Date: 20090719
  Serious: Yes (Death, Hospitalization, Other)
  Sender: FDA-Public Use
  Company Number: 2007-02528

PATIENT
  Age: 71 Year
  Sex: Female
  Weight: 36 kg

DRUGS (9)
  1. VELCADE [Suspect]
     Indication: MULTIPLE MYELOMA
     Dosage: 1.30 MG/M2, INTRAVENOUS
     Route: 042
     Dates: start: 20070713, end: 20070720
  2. LASIX [Concomitant]
  3. OMEPRAZON (OMEPRAZONE) [Concomitant]
  4. ALLOPURINOL [Concomitant]
  5. SELBEX (TEPRENONE) [Concomitant]
  6. ZOLPIDEM TARTRATE [Concomitant]
  7. VERAPAMIL HYDROCHLORIDE [Concomitant]
  8. TAMBOCOR [Concomitant]
  9. THALIDOMIDE [Concomitant]

REACTIONS (23)
  - ANAEMIA [None]
  - ARTERIOSCLEROSIS CORONARY ARTERY [None]
  - BLOOD CREATININE INCREASED [None]
  - BLOOD LACTATE DEHYDROGENASE INCREASED [None]
  - BLOOD SODIUM DECREASED [None]
  - BLOOD UREA INCREASED [None]
  - BRONCHOPNEUMONIA [None]
  - CONDITION AGGRAVATED [None]
  - DISSEMINATED INTRAVASCULAR COAGULATION [None]
  - FUNGAL INFECTION [None]
  - GENERAL PHYSICAL HEALTH DETERIORATION [None]
  - GOITRE [None]
  - HAEMOSIDEROSIS [None]
  - HYPOALBUMINAEMIA [None]
  - HYPOTENSION [None]
  - LYMPHOCYTE COUNT DECREASED [None]
  - MULTIPLE MYELOMA [None]
  - PLEURAL EFFUSION [None]
  - PULMONARY CONGESTION [None]
  - PYREXIA [None]
  - RESPIRATORY FAILURE [None]
  - RIGHT VENTRICULAR FAILURE [None]
  - UTERINE LEIOMYOMA [None]
